FAERS Safety Report 6924667-9 (Version None)
Quarter: 2010Q3

REPORT INFORMATION
  Report Type: 
  Country: None (occurrence: None)
  Receive Date: 20100816
  Receipt Date: 20100805
  Transmission Date: 20110219
  Serious: No
  Sender: FDA-Public Use
  Company Number: US-BIOGENIDEC-2010BI021033

PATIENT
  Sex: Male

DRUGS (1)
  1. TYSABRI [Suspect]
     Indication: MULTIPLE SCLEROSIS
     Route: 042
     Dates: start: 20070914

REACTIONS (12)
  - ARTHRITIS [None]
  - COORDINATION ABNORMAL [None]
  - DRUG DEPENDENCE [None]
  - GAIT DISTURBANCE [None]
  - HEPATIC ENZYME INCREASED [None]
  - MUSCLE SPASMS [None]
  - MUSCULAR WEAKNESS [None]
  - NAUSEA [None]
  - NEURALGIA [None]
  - RENAL FUNCTION TEST ABNORMAL [None]
  - RESTLESS LEGS SYNDROME [None]
  - STRESS [None]
